FAERS Safety Report 11729353 (Version 1)
Quarter: 2015Q4

REPORT INFORMATION
  Report Type: Spontaneous
  Country: US (occurrence: US)
  Receive Date: 20151110
  Receipt Date: 20151110
  Transmission Date: 20160304
  Serious: No
  Sender: FDA-Public Use
  Company Number: US-ELI_LILLY_AND_COMPANY-US201112007021

PATIENT
  Age: 54 Year
  Sex: Female

DRUGS (2)
  1. FORTEO [Suspect]
     Active Substance: TERIPARATIDE
     Dosage: 20 UG, QD
     Dates: start: 20111213, end: 20111222
  2. FORTEO [Suspect]
     Active Substance: TERIPARATIDE
     Indication: OSTEOPOROSIS
     Dosage: 20 UG, QD
     Dates: start: 20111117, end: 20111206

REACTIONS (9)
  - Pain [Unknown]
  - Lethargy [Unknown]
  - Pain in extremity [Unknown]
  - Vitamin D deficiency [Unknown]
  - Influenza [Recovering/Resolving]
  - Asthenia [Unknown]
  - Fatigue [Unknown]
  - Arthralgia [Unknown]
  - Middle insomnia [Unknown]

NARRATIVE: CASE EVENT DATE: 201111
